FAERS Safety Report 26002740 (Version 1)
Quarter: 2025Q4

REPORT INFORMATION
  Report Type: Report from Study
  Country: US (occurrence: US)
  Receive Date: 20251106
  Receipt Date: 20251106
  Transmission Date: 20260117
  Serious: Yes (Other)
  Sender: ROCHE
  Company Number: US-ROCHE-10000426813

PATIENT
  Age: 34 Year
  Sex: Female

DRUGS (1)
  1. RITUXAN [Suspect]
     Active Substance: RITUXIMAB
     Indication: Lupus endocarditis
     Dosage: UNKNOWN
     Route: 065

REACTIONS (2)
  - Blindness unilateral [Unknown]
  - Off label use [Unknown]
